FAERS Safety Report 5746941-4 (Version None)
Quarter: 2008Q2

REPORT INFORMATION
  Report Type: 
  Country: None (occurrence: None)
  Receive Date: 20080522
  Receipt Date: 20080515
  Transmission Date: 20081010
  Serious: Yes (Other)
  Sender: FDA-Public Use
  Company Number: US-ASTRAZENECA-2007UW25376

PATIENT
  Age: 73 Year
  Sex: Female
  Weight: 77.1 kg

DRUGS (12)
  1. SYMBICORT [Suspect]
     Indication: ASTHMA
     Dosage: 160/4.5 UG TWO PUFFS BID MORNING AND NIGHT
     Route: 055
  2. SYMBICORT [Suspect]
     Dosage: 160/4.5 UG ONE PUFF BID IN THE MORNING
     Route: 055
  3. NEXIUM [Concomitant]
     Route: 048
  4. TOPROL-XL [Concomitant]
     Route: 048
  5. SINGULAIR [Concomitant]
  6. VASOTEC [Concomitant]
  7. CELEBREX [Concomitant]
  8. CALTRATE [Concomitant]
  9. FISH OIL [Concomitant]
  10. HERBAL [Concomitant]
  11. BUTISOL [Concomitant]
  12. PULMICORT [Concomitant]
     Dosage: PM ONLY
     Route: 055

REACTIONS (8)
  - ABNORMAL DREAMS [None]
  - BLOOD PRESSURE INCREASED [None]
  - DRUG EFFECT DECREASED [None]
  - DYSPHONIA [None]
  - DYSPNOEA [None]
  - INSOMNIA [None]
  - NERVOUSNESS [None]
  - PHARMACEUTICAL PRODUCT COMPLAINT [None]
